FAERS Safety Report 12586638 (Version 1)
Quarter: 2016Q3

REPORT INFORMATION
  Report Type: Spontaneous
  Country: US (occurrence: None)
  Receive Date: 20160722
  Receipt Date: 20160722
  Transmission Date: 20161109
  Serious: No
  Sender: FDA-Public Use
  Company Number: None

PATIENT
  Age: 53 Year
  Sex: Female
  Weight: 83.92 kg

DRUGS (2)
  1. BENICAR [Concomitant]
     Active Substance: OLMESARTAN MEDOXOMIL
  2. ZECUITY [Suspect]
     Active Substance: SUMATRIPTAN SUCCINATE
     Indication: MIGRAINE
     Dosage: 24 PATCH(ES) AS NEEDED APPLIED AS MEDICATED PATCH TO SKIN
     Dates: start: 20150701, end: 20160720

REACTIONS (3)
  - Application site burn [None]
  - Application site pruritus [None]
  - Application site urticaria [None]
